FAERS Safety Report 17860082 (Version 6)
Quarter: 2020Q3

REPORT INFORMATION
  Report Type: Other
  Country: CA (occurrence: CA)
  Receive Date: 20200604
  Receipt Date: 20200728
  Transmission Date: 20201103
  Serious: Yes (Other)
  Sender: FDA-Public Use
  Company Number: CA-ROCHE-2614798

PATIENT
  Age: 54 Year
  Sex: Female

DRUGS (5)
  1. GABAPENTIN. [Concomitant]
     Active Substance: GABAPENTIN
  2. CIPRALEX [Concomitant]
     Active Substance: ESCITALOPRAM OXALATE
  3. MODAFINIL. [Concomitant]
     Active Substance: MODAFINIL
     Indication: FATIGUE
  4. DULOXETINE. [Concomitant]
     Active Substance: DULOXETINE
  5. OCREVUS [Suspect]
     Active Substance: OCRELIZUMAB
     Indication: PRIMARY PROGRESSIVE MULTIPLE SCLEROSIS
     Dosage: DAY 0, 14 THEN 600 MG EVERY SIX MONTHS
     Route: 042
     Dates: start: 20180730

REACTIONS (6)
  - Paraesthesia [Recovered/Resolved]
  - Arthritis [Not Recovered/Not Resolved]
  - Genital herpes [Recovering/Resolving]
  - Nervousness [Unknown]
  - Fibromyalgia [Not Recovered/Not Resolved]
  - Tooth fracture [Recovering/Resolving]

NARRATIVE: CASE EVENT DATE: 20200528
